FAERS Safety Report 8355909-3 (Version None)
Quarter: 2012Q2

REPORT INFORMATION
  Report Type: 
  Country: None (occurrence: None)
  Receive Date: 20120514
  Receipt Date: 20120504
  Transmission Date: 20120825
  Serious: Yes (Life-Threatening, Hospitalization)
  Sender: FDA-Public Use
  Company Number: US-BAYER-2012-014760

PATIENT
  Age: 39 Year
  Sex: Female
  Weight: 59 kg

DRUGS (5)
  1. DROSPIRENONE AND ETHINYL ESTRADIOL [Suspect]
     Indication: CONTRACEPTION
     Dosage: UNK
     Dates: start: 20090901, end: 20100301
  2. DROSPIRENONE AND ETHINYL ESTRADIOL [Suspect]
     Dosage: UNK
     Dates: start: 20060101, end: 20100101
  3. YAZ [Suspect]
     Dosage: UNK
     Dates: start: 20060101, end: 20100101
  4. IBUPROFEN (ADVIL) [Concomitant]
     Indication: HEADACHE
     Dosage: 2 TABLETS AS NEEDED
  5. IRON SULFATETHIAMIN COMPOUND TAB [Concomitant]

REACTIONS (6)
  - PAIN [None]
  - ANHEDONIA [None]
  - INJURY [None]
  - PULMONARY EMBOLISM [None]
  - FEAR OF DISEASE [None]
  - ANXIETY [None]
